FAERS Safety Report 12678248 (Version 2)
Quarter: 2016Q3

REPORT INFORMATION
  Report Type: Spontaneous
  Country: US (occurrence: US)
  Receive Date: 20160823
  Receipt Date: 20160921
  Transmission Date: 20161109
  Serious: No
  Sender: FDA-Public Use
  Company Number: US-BAYER-2016-158939

PATIENT
  Age: 40 Year
  Sex: Female

DRUGS (1)
  1. MIRENA [Suspect]
     Active Substance: LEVONORGESTREL
     Indication: CONTRACEPTION
     Dosage: 20 MCG/24HR, CONT
     Route: 015
     Dates: start: 20160804, end: 20160815

REACTIONS (9)
  - Vulvovaginal burning sensation [Recovered/Resolved]
  - Feeling hot [Recovered/Resolved]
  - Medical device pain [Recovered/Resolved]
  - Genital swelling [Recovered/Resolved]
  - Abdominal pain lower [Recovered/Resolved]
  - Vulvovaginal erythema [Recovered/Resolved]
  - Vulvovaginal pain [Recovered/Resolved]
  - Device expulsion [Recovered/Resolved]
  - Vulvovaginal discomfort [Recovered/Resolved]

NARRATIVE: CASE EVENT DATE: 201608
